FAERS Safety Report 5342469-4 (Version None)
Quarter: 2007Q2

REPORT INFORMATION
  Report Type: 
  Country: None (occurrence: None)
  Receive Date: 20070601
  Receipt Date: 20070528
  Transmission Date: 20071010
  Serious: Yes (Hospitalization, Other)
  Sender: FDA-Public Use
  Company Number: BR-ASTRAZENECA-2007UW13106

PATIENT
  Age: 78 Year
  Sex: Male
  Weight: 68 kg

DRUGS (2)
  1. CRESTOR [Suspect]
     Indication: CAROTID ARTERY DISEASE
     Route: 048
     Dates: start: 20070401, end: 20070525
  2. PLAVIX [Concomitant]
     Indication: ISCHAEMIA
     Route: 048
     Dates: start: 20070401

REACTIONS (1)
  - STEVENS-JOHNSON SYNDROME [None]
